FAERS Safety Report 23859749 (Version 1)
Quarter: 2024Q2

REPORT INFORMATION
  Report Type: Spontaneous
  Country: US (occurrence: None)
  Receive Date: 20240515
  Receipt Date: 20240515
  Transmission Date: 20240716
  Serious: Yes (Disabling, Other)
  Sender: FDA-Public Use
  Company Number: 2024A112091

PATIENT

DRUGS (4)
  1. FARXIGA [Suspect]
     Active Substance: DAPAGLIFLOZIN PROPANEDIOL
     Route: 048
  2. METOPROLOL [Suspect]
     Active Substance: METOPROLOL
     Indication: Cardiac dysfunction
     Route: 048
  3. PFIZER-BIONTECH COVID-19 VACCINE [Suspect]
     Active Substance: TOZINAMERAN
     Route: 030
     Dates: start: 20210315
  4. ENTRESTO [Suspect]
     Active Substance: SACUBITRIL\VALSARTAN

REACTIONS (3)
  - Weight decreased [Unknown]
  - Cardiac dysfunction [Unknown]
  - Dyspnoea [Unknown]
